FAERS Safety Report 15167475 (Version 1)
Quarter: 2018Q3

REPORT INFORMATION
  Report Type: Spontaneous
  Country: GB (occurrence: GB)
  Receive Date: 20180719
  Receipt Date: 20180719
  Transmission Date: 20181010
  Serious: Yes (Other)
  Sender: FDA-Public Use
  Company Number: GB-TEVA-2018-GB-928972

PATIENT
  Age: 70 Year
  Sex: Male

DRUGS (1)
  1. TERBINAFINE. [Suspect]
     Active Substance: TERBINAFINE
     Indication: FUNGAL SKIN INFECTION
     Route: 048

REACTIONS (4)
  - Pharyngeal oedema [Recovered/Resolved]
  - Multiple sclerosis relapse [Unknown]
  - Headache [Recovered/Resolved]
  - Dysarthria [Unknown]
